FAERS Safety Report 9263431 (Version 1)
Quarter: 2013Q2

REPORT INFORMATION
  Report Type: Spontaneous
  Country: US (occurrence: US)
  Receive Date: 20130430
  Receipt Date: 20130430
  Transmission Date: 20140414
  Serious: No
  Sender: FDA-Public Use
  Company Number: US-ABBOTT-12P-163-0967811-00

PATIENT
  Age: 51 Year
  Sex: Female
  Weight: 50.85 kg

DRUGS (6)
  1. CREON [Suspect]
     Indication: DYSPEPSIA
     Dates: start: 20120810, end: 20120810
  2. PROTONIX [Concomitant]
     Indication: PRODUCT USED FOR UNKNOWN INDICATION
  3. ADVAIR [Concomitant]
     Indication: ASTHMA
  4. RHINOCORT [Concomitant]
     Indication: ASTHMA
  5. SINGULAIR [Concomitant]
     Indication: ASTHMA
  6. XOLAIR [Concomitant]
     Indication: ASTHMA
     Route: 050

REACTIONS (3)
  - Vertigo [Not Recovered/Not Resolved]
  - Dizziness [Not Recovered/Not Resolved]
  - Off label use [Unknown]
